FAERS Safety Report 5221815-6 (Version None)
Quarter: 2007Q1

REPORT INFORMATION
  Report Type: 
  Country: None (occurrence: None)
  Receive Date: 20070125
  Receipt Date: 20070125
  Transmission Date: 20070707
  Serious: No
  Sender: FDA-Public Use
  Company Number: None

PATIENT
  Age: 36 Year
  Sex: Female
  Weight: 77.1115 kg

DRUGS (1)
  1. EFFEXOR XR [Suspect]
     Dosage: 75MG  1XDAY  PO
     Route: 048
     Dates: start: 20060801, end: 20061201

REACTIONS (2)
  - INADEQUATE LUBRICATION [None]
  - LOSS OF LIBIDO [None]
